FAERS Safety Report 7647889-0 (Version None)
Quarter: 2011Q3

REPORT INFORMATION
  Report Type: 
  Country: None (occurrence: None)
  Receive Date: 20110801
  Receipt Date: 20110628
  Transmission Date: 20111222
  Serious: No
  Sender: FDA-Public Use
  Company Number: US-ABBOTT-11P-163-0835156-00

PATIENT
  Sex: Female

DRUGS (5)
  1. CREON [Suspect]
     Indication: PANCREATIC DISORDER
     Dates: start: 20100601
  2. JANUVIA [Concomitant]
     Indication: DIABETES MELLITUS
  3. GLYBURIDE [Concomitant]
     Indication: DIABETES MELLITUS
  4. LEVOTHYROXINE SODIUM [Concomitant]
     Indication: HYPOTHYROIDISM
  5. IMODIUM [Concomitant]
     Indication: DIARRHOEA

REACTIONS (7)
  - DIZZINESS [None]
  - DIARRHOEA [None]
  - POLLAKIURIA [None]
  - FREQUENT BOWEL MOVEMENTS [None]
  - DRY THROAT [None]
  - COUGH [None]
  - BLOOD GLUCOSE INCREASED [None]
